FAERS Safety Report 6359329-2 (Version None)
Quarter: 2009Q3

REPORT INFORMATION
  Report Type: 
  Country: None (occurrence: None)
  Receive Date: 20090917
  Receipt Date: 20090904
  Transmission Date: 20100115
  Serious: Yes (Hospitalization)
  Sender: FDA-Public Use
  Company Number: US-ROCHE-655259

PATIENT
  Sex: Female
  Weight: 53.5 kg

DRUGS (1)
  1. CAPECITABINE [Suspect]
     Indication: BREAST CANCER
     Route: 048
     Dates: start: 20090714

REACTIONS (2)
  - ATRIAL FIBRILLATION [None]
  - CATHETER RELATED INFECTION [None]
